FAERS Safety Report 15136582 (Version 1)
Quarter: 2018Q3

REPORT INFORMATION
  Report Type: Spontaneous
  Country: US (occurrence: US)
  Receive Date: 20180618
  Receipt Date: 20180618
  Transmission Date: 20181010
  Serious: No
  Sender: FDA-Public Use
  Company Number: None

PATIENT
  Sex: Male

DRUGS (2)
  1. AMPHETAMINE IR 30MG TEVA [Suspect]
     Active Substance: AMPHETAMINE
  2. AMPHETAMINE XR [Suspect]
     Active Substance: AMPHETAMINE

REACTIONS (1)
  - Drug effect decreased [None]
